FAERS Safety Report 9790676 (Version 3)
Quarter: 2014Q1

REPORT INFORMATION
  Report Type: Spontaneous
  Country: SE (occurrence: SE)
  Receive Date: 20131231
  Receipt Date: 20140110
  Transmission Date: 20141002
  Serious: Yes (Hospitalization, Other)
  Sender: FDA-Public Use
  Company Number: SE-BRISTOL-MYERS SQUIBB COMPANY-19856814

PATIENT
  Age: 58 Year
  Sex: Female

DRUGS (3)
  1. SPRYCEL [Suspect]
     Indication: CHRONIC MYELOID LEUKAEMIA
     Dosage: 70MG 11MAR13-14MAY13,50MG 15MAY13-12JUN13
     Dates: start: 20110729, end: 20130612
  2. LYRICA [Concomitant]
  3. OXYCONTIN [Concomitant]

REACTIONS (1)
  - Chylothorax [Recovered/Resolved]
